FAERS Safety Report 7858905-5 (Version None)
Quarter: 2011Q4

REPORT INFORMATION
  Report Type: 
  Country: None (occurrence: None)
  Receive Date: 20111027
  Receipt Date: 20111013
  Transmission Date: 20120403
  Serious: Yes (Other)
  Sender: FDA-Public Use
  Company Number: ES-RANBAXY-2011RR-48849

PATIENT
  Age: 39 Year
  Sex: Female

DRUGS (2)
  1. CETIRIZINE HCL [Suspect]
     Indication: NASOPHARYNGITIS
  2. CETIRIZINE HCL [Suspect]
     Indication: CONJUNCTIVITIS
     Dosage: 10 MG/DAY
     Route: 065

REACTIONS (1)
  - HEPATITIS TOXIC [None]
